FAERS Safety Report 6220228-8 (Version None)
Quarter: 2009Q2

REPORT INFORMATION
  Report Type: 
  Country: None (occurrence: None)
  Receive Date: 20090609
  Receipt Date: 20090526
  Transmission Date: 20091009
  Serious: Yes (Other)
  Sender: FDA-Public Use
  Company Number: US-ELI_LILLY_AND_COMPANY-US200904003062

PATIENT
  Sex: Female

DRUGS (6)
  1. CYMBALTA [Suspect]
     Indication: FIBROMYALGIA
     Dosage: 120 MG, UNK
  2. CYMBALTA [Interacting]
     Dosage: 60 MG, DAILY (1/D)
     Dates: end: 20090320
  3. SEROQUEL [Concomitant]
     Indication: INSOMNIA
     Dosage: 400 MG, EACH EVENING
  4. SEROQUEL [Concomitant]
     Dosage: 200 MG, EACH EVENING
  5. DURAGESIC-100 [Concomitant]
     Indication: PAIN
  6. MULTI-VITAMIN [Concomitant]

REACTIONS (9)
  - DRUG INTERACTION [None]
  - ELECTROCARDIOGRAM QT PROLONGED [None]
  - GASTROINTESTINAL DISORDER [None]
  - HYPOKALAEMIA [None]
  - HYPOMAGNESAEMIA [None]
  - SYNCOPE [None]
  - TOOTH DISORDER [None]
  - URINE SODIUM INCREASED [None]
  - VOMITING [None]
